FAERS Safety Report 5398100-5 (Version None)
Quarter: 2007Q3

REPORT INFORMATION
  Report Type: 
  Country: None (occurrence: None)
  Receive Date: 20070726
  Receipt Date: 20070716
  Transmission Date: 20080115
  Serious: Yes (Life-Threatening, Hospitalization)
  Sender: FDA-Public Use
  Company Number: CH-PFIZER INC-2007051723

PATIENT
  Age: 72 Year
  Sex: Male

DRUGS (5)
  1. CELEBREX [Suspect]
     Indication: OSTEOARTHRITIS
     Route: 048
     Dates: start: 20070623, end: 20070723
  2. CELEBREX [Suspect]
     Indication: ARTHRALGIA
  3. DIOVAN HCT [Concomitant]
  4. CONCOR [Concomitant]
  5. ASPIRIN [Concomitant]

REACTIONS (5)
  - ANAPHYLACTIC SHOCK [None]
  - HYPERSENSITIVITY [None]
  - HYPOTENSION [None]
  - RESPIRATORY FAILURE [None]
  - URTICARIA [None]
